FAERS Safety Report 17802798 (Version 1)
Quarter: 2020Q2

REPORT INFORMATION
  Report Type: Spontaneous
  Country: US (occurrence: US)
  Receive Date: 20200518
  Receipt Date: 20200518
  Transmission Date: 20200714
  Serious: No
  Sender: FDA-Public Use
  Company Number: None

PATIENT
  Age: 5 Year
  Sex: Male

DRUGS (3)
  1. ORKAMBI [Suspect]
     Active Substance: IVACAFTOR\LUMACAFTOR
     Indication: CYSTIC FIBROSIS
     Dates: start: 20180921, end: 20200227
  2. PULMOZYME [Suspect]
     Active Substance: DORNASE ALFA
     Indication: CYSTIC FIBROSIS
     Dosage: ?          OTHER STRENGTH:1MG/1ML;OTHER DOSE:1MG/1 ML;?
     Route: 055
     Dates: start: 20200227
  3. SODIUM CHLORIDE 7% [Concomitant]
     Active Substance: SODIUM CHLORIDE

REACTIONS (1)
  - Cystitis [None]

NARRATIVE: CASE EVENT DATE: 20200516
